FAERS Safety Report 12960196 (Version 1)
Quarter: 2016Q4

REPORT INFORMATION
  Report Type: Spontaneous
  Country: US (occurrence: US)
  Receive Date: 20161121
  Receipt Date: 20161121
  Transmission Date: 20170207
  Serious: Yes (Other)
  Sender: FDA-Public Use
  Company Number: None

PATIENT
  Age: 79 Year
  Sex: Female
  Weight: 68.49 kg

DRUGS (20)
  1. LOSARTAN. [Suspect]
     Active Substance: LOSARTAN
     Indication: HYPERTENSION
     Route: 048
     Dates: start: 20161029, end: 20161101
  2. ROBAXIN [Concomitant]
     Active Substance: METHOCARBAMOL
  3. VITAMIN B [Concomitant]
     Active Substance: VITAMIN B
  4. CLONAZEPAM. [Concomitant]
     Active Substance: CLONAZEPAM
  5. FLAXSEED [Concomitant]
     Active Substance: FLAX SEED
  6. LUTAIN [Concomitant]
  7. BENICAR [Concomitant]
     Active Substance: OLMESARTAN MEDOXOMIL
  8. GLUCOSAMINE W/CHONDROITIN [Concomitant]
     Active Substance: CHONDROITIN SULFATE A\GLUCOSAMINE
  9. BIOTIN [Concomitant]
     Active Substance: BIOTIN
  10. LOPRESSOR [Concomitant]
     Active Substance: METOPROLOL TARTRATE
  11. CALCIUM CITRATE [Concomitant]
     Active Substance: CALCIUM CITRATE
  12. CLONIDINE. [Concomitant]
     Active Substance: CLONIDINE
  13. VITAMIN D [Concomitant]
     Active Substance: CHOLECALCIFEROL
  14. VITAMIN C [Concomitant]
     Active Substance: ASCORBIC ACID
  15. VITAMIN E [Concomitant]
     Active Substance: .ALPHA.-TOCOPHEROL
  16. ARADSZ [Concomitant]
  17. CIDER VINEGAR [Concomitant]
  18. FISH OIL [Concomitant]
     Active Substance: FISH OIL
  19. GINGER. [Concomitant]
     Active Substance: GINGER
  20. TUMERIC [Concomitant]
     Active Substance: TURMERIC

REACTIONS (5)
  - Nausea [None]
  - Dizziness [None]
  - Abdominal discomfort [None]
  - Blood pressure increased [None]
  - Tinnitus [None]

NARRATIVE: CASE EVENT DATE: 20161030
